FAERS Safety Report 9103732 (Version 4)
Quarter: 2013Q4

REPORT INFORMATION
  Report Type: Spontaneous
  Country: JP (occurrence: JP)
  Receive Date: 20130219
  Receipt Date: 20131203
  Transmission Date: 20140711
  Serious: Yes (Death)
  Sender: FDA-Public Use
  Company Number: JP-PFIZER INC-2013058337

PATIENT
  Age: 95 Year
  Sex: Male

DRUGS (4)
  1. METHYLPREDNISOLONE [Suspect]
     Indication: STEROID THERAPY
     Dosage: 7500 MG TOTAL, UNK
  2. METHYLPREDNISOLONE [Suspect]
     Dosage: 1000 MG, 1X/DAY
  3. PREDNISOLONE [Suspect]
     Indication: STEROID THERAPY
     Dosage: 680 MG TOTAL, UNK
  4. PREDNISOLONE [Suspect]
     Indication: ACUTE LUNG INJURY

REACTIONS (3)
  - Bronchopulmonary aspergillosis [Fatal]
  - Multi-organ failure [Fatal]
  - Pneumocystis jirovecii pneumonia [Fatal]
